FAERS Safety Report 24238090 (Version 1)
Quarter: 2024Q3

REPORT INFORMATION
  Report Type: Spontaneous
  Country: US (occurrence: None)
  Receive Date: 20240821
  Receipt Date: 20240821
  Transmission Date: 20241017
  Serious: Yes (Hospitalization)
  Sender: Public
  Company Number: None

PATIENT
  Sex: Male

DRUGS (2)
  1. OPSUMIT [Suspect]
     Active Substance: MACITENTAN
     Indication: Pulmonary arterial hypertension
     Dosage: FREQUENCY : DAILY;?
     Route: 048
     Dates: start: 201912
  2. TREPROSTINIL DIOLAMINE [Concomitant]
     Active Substance: TREPROSTINIL DIOLAMINE

REACTIONS (8)
  - Therapy interrupted [None]
  - Epistaxis [None]
  - Chest pain [None]
  - Swelling [None]
  - Weight fluctuation [None]
  - Fluid retention [None]
  - Renal impairment [None]
  - Cardiac disorder [None]
